FAERS Safety Report 22211357 (Version 2)
Quarter: 2023Q2

REPORT INFORMATION
  Report Type: Spontaneous
  Country: CN (occurrence: CN)
  Receive Date: 20230414
  Receipt Date: 20230421
  Transmission Date: 20230722
  Serious: Yes (Hospitalization, Other)
  Sender: FDA-Public Use
  Company Number: CN-SA-2023SA112575

PATIENT
  Age: 62 Year
  Sex: Female

DRUGS (12)
  1. OXALIPLATIN [Suspect]
     Active Substance: OXALIPLATIN
     Indication: Gastric cancer stage III
     Dosage: UNK
     Route: 041
     Dates: start: 20200510
  2. OXALIPLATIN [Suspect]
     Active Substance: OXALIPLATIN
     Dosage: UNK UNK, INFUSED
     Route: 042
     Dates: start: 20200531
  3. OXALIPLATIN [Suspect]
     Active Substance: OXALIPLATIN
     Dosage: UNK UNK, QCY INFUSION
     Route: 041
     Dates: start: 20200419
  4. MANNITOL [Suspect]
     Active Substance: MANNITOL
     Indication: Gastric cancer stage III
     Dosage: UNK UNK, QCY
     Route: 042
     Dates: start: 20200510
  5. MANNITOL [Suspect]
     Active Substance: MANNITOL
     Dosage: UNK UNK, INFUSED
     Route: 042
     Dates: start: 20200531
  6. MANNITOL [Suspect]
     Active Substance: MANNITOL
     Dosage: UNK UNK, QCY
     Route: 042
  7. GIMERACIL\OTERACIL\TEGAFUR [Suspect]
     Active Substance: GIMERACIL\OTERACIL\OTERACIL POTASSIUM\TEGAFUR
     Indication: Gastric cancer stage III
     Dosage: 60 MG, BID (DAYS 1-14)
     Route: 048
     Dates: start: 20200419, end: 2020
  8. GIMERACIL\OTERACIL\TEGAFUR [Suspect]
     Active Substance: GIMERACIL\OTERACIL\OTERACIL POTASSIUM\TEGAFUR
     Dosage: UNK UNK, QCY
     Route: 048
     Dates: start: 20200510, end: 2020
  9. GIMERACIL\OTERACIL\TEGAFUR [Suspect]
     Active Substance: GIMERACIL\OTERACIL\OTERACIL POTASSIUM\TEGAFUR
     Dosage: UNK UNK, QCY
     Route: 048
     Dates: start: 20200531
  10. DEXAMETHASONE [Concomitant]
     Active Substance: DEXAMETHASONE
     Indication: Premedication
     Dosage: 8 MG
     Dates: start: 20200419
  11. RAMOSETRON HYDROCHLORIDE [Concomitant]
     Active Substance: RAMOSETRON HYDROCHLORIDE
     Indication: Premedication
     Dosage: 0.3 G
     Dates: start: 20200419
  12. PANTOPRAZOLE SODIUM [Concomitant]
     Active Substance: PANTOPRAZOLE SODIUM
     Indication: Premedication
     Dosage: 40 MG
     Route: 041
     Dates: start: 20200419

REACTIONS (13)
  - Dermatitis exfoliative [Recovered/Resolved]
  - Generalised oedema [Recovered/Resolved]
  - Flushing [Recovered/Resolved]
  - Erythema [Recovered/Resolved]
  - Skin exfoliation [Recovered/Resolved]
  - Dyspnoea [Recovered/Resolved]
  - Pruritus [Recovered/Resolved]
  - Scratch [Recovered/Resolved]
  - Blister [Recovered/Resolved]
  - Skin fissures [Recovered/Resolved]
  - Skin weeping [Recovered/Resolved]
  - Nausea [Unknown]
  - Asthenia [Unknown]

NARRATIVE: CASE EVENT DATE: 20200401
